FAERS Safety Report 5121027-0 (Version None)
Quarter: 2006Q4

REPORT INFORMATION
  Report Type: 
  Country: None (occurrence: None)
  Receive Date: 20061005
  Receipt Date: 20061002
  Transmission Date: 20070319
  Serious: Yes (Life-Threatening)
  Sender: FDA-Public Use
  Company Number: GB-MERCK-0610GBR00014

PATIENT
  Age: 75 Year
  Sex: Male
  Weight: 64 kg

DRUGS (3)
  1. ZOCOR [Suspect]
     Indication: BLOOD CHOLESTEROL
     Route: 048
     Dates: start: 20060530, end: 20060715
  2. ENALAPRIL MALEATE [Concomitant]
     Indication: ANGINA PECTORIS
     Route: 048
     Dates: start: 19950101
  3. ATORVASTATIN CALCIUM [Concomitant]
     Route: 065

REACTIONS (4)
  - NIGHTMARE [None]
  - OVERDOSE [None]
  - SLEEP DISORDER [None]
  - SUICIDAL IDEATION [None]
